FAERS Safety Report 12920411 (Version 1)
Quarter: 2016Q4

REPORT INFORMATION
  Report Type: Spontaneous
  Country: US (occurrence: US)
  Receive Date: 20161104
  Receipt Date: 20161104
  Transmission Date: 20170207
  Serious: No
  Sender: FDA-Public Use
  Company Number: None

PATIENT
  Sex: Female

DRUGS (1)
  1. COSENTYX [Suspect]
     Active Substance: SECUKINUMAB
     Indication: ANKYLOSING SPONDYLITIS
     Route: 058
     Dates: start: 201610

REACTIONS (6)
  - Rash [None]
  - Influenza like illness [None]
  - Fatigue [None]
  - Rheumatoid arthritis [None]
  - Drug ineffective [None]
  - Nausea [None]
